FAERS Safety Report 5597571-9 (Version None)
Quarter: 2008Q1

REPORT INFORMATION
  Report Type: 
  Country: None (occurrence: None)
  Receive Date: 20080121
  Receipt Date: 20080116
  Transmission Date: 20080703
  Serious: Yes (Hospitalization)
  Sender: FDA-Public Use
  Company Number: A0703652A

PATIENT
  Age: 50 Year
  Sex: Female
  Weight: 136.4 kg

DRUGS (14)
  1. ADVAIR DISKUS 100/50 [Suspect]
     Indication: ASTHMA
     Dosage: 1PUFF TWICE PER DAY
     Route: 055
  2. LIDODERM [Concomitant]
  3. HYDROCODONE [Concomitant]
  4. SINGULAIR [Concomitant]
  5. UNSPECIFIED MEDICATION [Concomitant]
  6. KEPPRA [Concomitant]
  7. ASACOL [Concomitant]
  8. CARBATROL [Concomitant]
  9. UNSPECIFIED MEDICATION [Concomitant]
  10. FEXOFENADINE [Concomitant]
  11. ALBUTEROL [Concomitant]
  12. PRO-AIR [Concomitant]
  13. FLONASE [Concomitant]
  14. RESTASIS [Concomitant]

REACTIONS (2)
  - JOINT CREPITATION [None]
  - OSTEOARTHRITIS [None]
